FAERS Safety Report 5623686-2 (Version None)
Quarter: 2008Q1

REPORT INFORMATION
  Report Type: 
  Country: None (occurrence: None)
  Receive Date: 20080129
  Receipt Date: 20070525
  Transmission Date: 20080703
  Serious: Yes (Other)
  Sender: FDA-Public Use
  Company Number: WAES 0705USA05706

PATIENT
  Age: 72 Year
  Sex: Male

DRUGS (4)
  1. PRIMAXIN [Suspect]
     Indication: PNEUMONIA
     Dosage: 0.5 GM/1X/IV ; 0.5 GM/BID/IV
     Route: 042
     Dates: start: 20070514, end: 20070514
  2. PRIMAXIN [Suspect]
     Indication: PNEUMONIA
     Dosage: 0.5 GM/1X/IV ; 0.5 GM/BID/IV
     Route: 042
     Dates: start: 20070515, end: 20070516
  3. FIRSTCIN [Concomitant]
  4. CLARITHROMYCIN [Concomitant]

REACTIONS (1)
  - PLATELET COUNT INCREASED [None]
